FAERS Safety Report 8281685-9 (Version None)
Quarter: 2012Q2

REPORT INFORMATION
  Report Type: 
  Country: None (occurrence: None)
  Receive Date: 20120410
  Receipt Date: 20120329
  Transmission Date: 20120825
  Serious: Yes (Hospitalization)
  Sender: FDA-Public Use
  Company Number: AUR-APL-2012-01381

PATIENT
  Age: 85 Year
  Sex: Female

DRUGS (7)
  1. BENDROFLUMETHIAZIDE (BENDROFLUMETHIAZIDE) [Suspect]
     Indication: HYPERTENSION
  2. ASPIRIN [Concomitant]
  3. BUPRENORPHINE [Concomitant]
  4. ATENOLOL [Concomitant]
  5. FLOXACILLIN SODIUM [Suspect]
     Indication: BLISTER INFECTED
     Dosage: (500 MG),ORAL
     Route: 048
     Dates: start: 20120116, end: 20120123
  6. FLOXACILLIN SODIUM [Suspect]
     Indication: HERPES ZOSTER
     Dosage: (500 MG),ORAL
     Route: 048
     Dates: start: 20120116, end: 20120123
  7. PERINDOPRIL ERBUMINE [Suspect]
     Indication: HYPERTENSION

REACTIONS (8)
  - DECREASED APPETITE [None]
  - LIVER FUNCTION TEST ABNORMAL [None]
  - CHROMATURIA [None]
  - HYPONATRAEMIA [None]
  - URINARY TRACT INFECTION [None]
  - FAECES DISCOLOURED [None]
  - ABDOMINAL PAIN UPPER [None]
  - JAUNDICE [None]
